FAERS Safety Report 10699550 (Version 1)
Quarter: 2015Q1

REPORT INFORMATION
  Report Type: Spontaneous
  Country: US (occurrence: None)
  Receive Date: 20150108
  Receipt Date: 20150108
  Transmission Date: 20150721
  Serious: No
  Sender: FDA-Public Use
  Company Number: None

PATIENT
  Sex: Male

DRUGS (1)
  1. ISONIAZID. [Suspect]
     Active Substance: ISONIAZID

REACTIONS (18)
  - Myalgia [None]
  - Skin discolouration [None]
  - Haematuria [None]
  - Nocturia [None]
  - Asthenia [None]
  - Dry skin [None]
  - Dizziness [None]
  - Vein disorder [None]
  - Pain [None]
  - Urinary incontinence [None]
  - Muscle spasms [None]
  - Grip strength decreased [None]
  - Paraesthesia [None]
  - Back pain [None]
  - Insomnia [None]
  - Toxicity to various agents [None]
  - Pulse abnormal [None]
  - Neoplasm skin [None]

NARRATIVE: CASE EVENT DATE: 201307
